FAERS Safety Report 6804610-3 (Version None)
Quarter: 2010Q2

REPORT INFORMATION
  Report Type: 
  Country: None (occurrence: None)
  Receive Date: 20100628
  Receipt Date: 20070620
  Transmission Date: 20101027
  Serious: Yes (Other)
  Sender: FDA-Public Use
  Company Number: US-PFIZER INC-2007020323

PATIENT
  Sex: Female
  Weight: 53.5 kg

DRUGS (5)
  1. XALATAN [Suspect]
     Indication: OPEN ANGLE GLAUCOMA
     Dates: start: 20061113, end: 20070119
  2. LIPITOR [Concomitant]
  3. GLUCOSAMINE [Concomitant]
  4. COREG [Concomitant]
  5. ACETYLSALICYLIC ACID [Concomitant]

REACTIONS (2)
  - PRURITUS [None]
  - RASH [None]
